FAERS Safety Report 6286989-7 (Version None)
Quarter: 2009Q3

REPORT INFORMATION
  Report Type: 
  Country: None (occurrence: None)
  Receive Date: 20090728
  Receipt Date: 20090716
  Transmission Date: 20100115
  Serious: Yes (Life-Threatening)
  Sender: FDA-Public Use
  Company Number: JP-SANOFI-SYNTHELABO-A01200905306

PATIENT
  Sex: Female
  Weight: 48 kg

DRUGS (15)
  1. AVASTIN [Suspect]
     Route: 041
     Dates: start: 20090513, end: 20090513
  2. FLUOROURACIL [Suspect]
     Dosage: INFUSION 2400 MG/M2
     Route: 042
     Dates: start: 20090501, end: 20090501
  3. ZOFRAN [Concomitant]
     Route: 048
     Dates: start: 20090513, end: 20090526
  4. HOCHU-EKKI-TO [Concomitant]
     Route: 048
     Dates: start: 20090513, end: 20090526
  5. ASPIRIN [Concomitant]
     Dates: start: 20070911
  6. ASPIRIN [Concomitant]
     Dosage: 100 MG
     Route: 048
     Dates: start: 20090513, end: 20090526
  7. PRIMPERAN [Concomitant]
     Dosage: 15 MG
     Route: 048
     Dates: start: 20090513, end: 20090526
  8. CINAL [Concomitant]
     Route: 048
     Dates: start: 20090513, end: 20090526
  9. TAGAMET [Concomitant]
     Route: 048
     Dates: start: 20090513, end: 20090526
  10. SEROTONE [Concomitant]
     Indication: PREMEDICATION
     Dosage: 10 MG
     Route: 042
     Dates: start: 20090513, end: 20090513
  11. DECADRON [Concomitant]
     Indication: PREMEDICATION
     Dosage: 8 MG
     Route: 042
     Dates: start: 20070919, end: 20090513
  12. KYTRIL [Concomitant]
     Indication: PREMEDICATION
     Dosage: 3 MG
     Route: 042
     Dates: start: 20070919, end: 20090415
  13. CALCIUM LEVOFOLINATE [Suspect]
     Route: 041
     Dates: start: 20090513, end: 20090513
  14. SEROTONE [Concomitant]
     Dates: start: 20070919, end: 20070919
  15. ELPLAT [Suspect]
     Indication: COLON CANCER METASTATIC
     Route: 042
     Dates: start: 20090513, end: 20090513

REACTIONS (1)
  - DISSEMINATED INTRAVASCULAR COAGULATION [None]
